FAERS Safety Report 16359030 (Version 2)
Quarter: 2019Q2

REPORT INFORMATION
  Report Type: Spontaneous
  Country: BE (occurrence: BE)
  Receive Date: 20190527
  Receipt Date: 20190625
  Transmission Date: 20190711
  Serious: Yes (Other)
  Sender: FDA-Public Use
  Company Number: PHHY2019BE119984

PATIENT
  Age: 60 Year
  Sex: Female
  Weight: 63 kg

DRUGS (1)
  1. VOLTAREN [Suspect]
     Active Substance: DICLOFENAC SODIUM
     Indication: PRODUCT USED FOR UNKNOWN INDICATION
     Dosage: 140 MG, QD
     Route: 062
     Dates: start: 20190426, end: 20190426

REACTIONS (6)
  - Scar [Recovered/Resolved with Sequelae]
  - Application site vesicles [Recovered/Resolved with Sequelae]
  - Burns second degree [Recovered/Resolved with Sequelae]
  - Application site pain [Recovered/Resolved with Sequelae]
  - Blister [Recovered/Resolved with Sequelae]
  - Application site burn [Recovered/Resolved with Sequelae]

NARRATIVE: CASE EVENT DATE: 20190426
